FAERS Safety Report 17160168 (Version 2)
Quarter: 2019Q4

REPORT INFORMATION
  Report Type: Report from Study
  Country: US (occurrence: US)
  Receive Date: 20191216
  Receipt Date: 20191223
  Transmission Date: 20200122
  Serious: No
  Sender: FDA-Public Use
  Company Number: US-SA-2019SA344470

PATIENT
  Age: 45 Year
  Sex: Male

DRUGS (12)
  1. DUPILUMAB [Suspect]
     Active Substance: DUPILUMAB
     Dosage: 300 MG, QOW
     Route: 058
     Dates: start: 201912
  2. NULEV [HYOSCYAMINE SULFATE] [Concomitant]
  3. BEPREVE [Concomitant]
     Active Substance: BEPOTASTINE BESILATE
  4. DUPILUMAB [Suspect]
     Active Substance: DUPILUMAB
     Indication: DERMATITIS ATOPIC
     Dosage: 600 MG, 1X
     Route: 058
     Dates: start: 20191119, end: 20191119
  5. LOSARTAN. [Concomitant]
     Active Substance: LOSARTAN
  6. MONTELUKAST [Concomitant]
     Active Substance: MONTELUKAST SODIUM
  7. RESTASIS [Concomitant]
     Active Substance: CYCLOSPORINE
  8. LOTEMAX [Concomitant]
     Active Substance: LOTEPREDNOL ETABONATE
  9. NALTREXONE [Concomitant]
     Active Substance: NALTREXONE
  10. VENTOLINE [SALBUTAMOL] [Concomitant]
     Active Substance: ALBUTEROL SULFATE
  11. DESLORATADIN [Concomitant]
     Active Substance: DESLORATADINE
  12. OMEPRAZOLE. [Concomitant]
     Active Substance: OMEPRAZOLE

REACTIONS (5)
  - Product dose omission [Unknown]
  - Dermatitis atopic [Not Recovered/Not Resolved]
  - Bruxism [Not Recovered/Not Resolved]
  - Anxiety [Not Recovered/Not Resolved]
  - Rash [Not Recovered/Not Resolved]

NARRATIVE: CASE EVENT DATE: 2019
